FAERS Safety Report 4927191-8 (Version None)
Quarter: 2006Q1

REPORT INFORMATION
  Report Type: 
  Country: None (occurrence: None)
  Receive Date: 20060228
  Receipt Date: 20050104
  Transmission Date: 20060701
  Serious: No
  Sender: FDA-Public Use
  Company Number: US-GLAXOSMITHKLINE-A0539320A

PATIENT
  Sex: Female

DRUGS (2)
  1. IMITREX [Suspect]
     Indication: MIGRAINE
     Route: 065
  2. EXCEDRIN [Concomitant]

REACTIONS (2)
  - ADVERSE EVENT [None]
  - DRUG INEFFECTIVE [None]
